FAERS Safety Report 4360218-3 (Version None)
Quarter: 2004Q2

REPORT INFORMATION
  Report Type: 
  Country: None (occurrence: None)
  Receive Date: 20040513
  Receipt Date: 20040507
  Transmission Date: 20050107
  Serious: Yes (Death)
  Sender: FDA-Public Use
  Company Number: 2004-115704-NL

PATIENT
  Age: 73 Year
  Sex: Female

DRUGS (2)
  1. MIRTAZAPINE [Suspect]
     Dosage: DF
  2. TRIFLUOPERAZINE HCL [Concomitant]

REACTIONS (1)
  - HYPONATRAEMIA [None]
